FAERS Safety Report 5903459-3 (Version None)
Quarter: 2008Q3

REPORT INFORMATION
  Report Type: 
  Country: None (occurrence: None)
  Receive Date: 20080930
  Receipt Date: 20080924
  Transmission Date: 20090109
  Serious: Yes (Other)
  Sender: FDA-Public Use
  Company Number: US-ABBOTT-08P-163-0478141-00

PATIENT
  Sex: Male

DRUGS (2)
  1. HUMIRA [Suspect]
     Indication: RHEUMATOID ARTHRITIS
     Route: 058
     Dates: start: 20080701, end: 20080801
  2. LEVOFLOXACIN [Concomitant]
     Indication: SINUSITIS
     Dates: start: 20080924

REACTIONS (4)
  - CARPAL TUNNEL SYNDROME [None]
  - INJECTION SITE IRRITATION [None]
  - SINUSITIS [None]
  - TENDON INJURY [None]
